FAERS Safety Report 9147588 (Version 4)
Quarter: 2013Q2

REPORT INFORMATION
  Report Type: Report from Study
  Country: JP (occurrence: JP)
  Receive Date: 20130307
  Receipt Date: 20130607
  Transmission Date: 20140414
  Serious: Yes (Hospitalization, Other)
  Sender: FDA-Public Use
  Company Number: JP-JNJFOC-20130300843

PATIENT
  Age: 41 Year
  Sex: Male
  Weight: 130 kg

DRUGS (16)
  1. USTEKINUMAB [Suspect]
     Indication: PSORIASIS
     Route: 058
     Dates: start: 20120210
  2. USTEKINUMAB [Suspect]
     Indication: PSORIASIS
     Route: 058
     Dates: start: 20120508
  3. USTEKINUMAB [Suspect]
     Indication: PSORIASIS
     Route: 058
     Dates: start: 20121112
  4. USTEKINUMAB [Suspect]
     Indication: PSORIASIS
     Route: 058
     Dates: start: 20130204
  5. USTEKINUMAB [Suspect]
     Indication: PSORIASIS
     Route: 058
     Dates: start: 20120731
  6. USTEKINUMAB [Suspect]
     Indication: PSORIASIS
     Route: 058
     Dates: start: 20120113, end: 20120113
  7. GASTER D [Concomitant]
     Indication: PROPHYLAXIS
     Route: 048
     Dates: start: 20121228
  8. GASTER D [Concomitant]
     Indication: PROPHYLAXIS
     Route: 048
     Dates: end: 20121026
  9. TALION [Concomitant]
     Indication: PROPHYLAXIS
     Route: 048
     Dates: end: 20121029
  10. ALLELOCK [Concomitant]
     Indication: PSORIASIS
     Route: 048
     Dates: end: 20121029
  11. ATARAX-P [Concomitant]
     Indication: PSORIASIS
     Route: 048
     Dates: end: 20121029
  12. NERISONA [Concomitant]
     Indication: PSORIASIS
  13. DOVONEX [Concomitant]
     Indication: PSORIASIS
     Route: 061
  14. DERMOVATE [Concomitant]
     Indication: PSORIASIS
     Route: 061
  15. KINDAVATE [Concomitant]
     Indication: PSORIASIS
     Route: 061
  16. AZUNOL [Concomitant]
     Indication: PSORIASIS
     Route: 061

REACTIONS (3)
  - Pancreatitis acute [Recovered/Resolved]
  - Diverticulitis [Recovering/Resolving]
  - Furuncle [Recovered/Resolved]
